FAERS Safety Report 24804915 (Version 1)
Quarter: 2025Q1

REPORT INFORMATION
  Report Type: Spontaneous
  Country: US (occurrence: US)
  Receive Date: 20250103
  Receipt Date: 20250103
  Transmission Date: 20250409
  Serious: Yes (Death, Other)
  Sender: PFIZER
  Company Number: US-PFIZER INC-PV202400170108

PATIENT
  Age: 32 Year
  Sex: Male

DRUGS (7)
  1. METRONIDAZOLE [Suspect]
     Active Substance: METRONIDAZOLE
     Indication: Escherichia infection
  2. METRONIDAZOLE [Suspect]
     Active Substance: METRONIDAZOLE
     Indication: Portal vein phlebitis
  3. MEROPENEM [Suspect]
     Active Substance: MEROPENEM
     Indication: Escherichia infection
  4. MEROPENEM [Suspect]
     Active Substance: MEROPENEM
     Indication: Portal vein phlebitis
  5. CEFTRIAXONE [Suspect]
     Active Substance: CEFTRIAXONE
     Indication: Escherichia infection
  6. CEFTRIAXONE [Suspect]
     Active Substance: CEFTRIAXONE
     Indication: Portal vein phlebitis
  7. ENOXAPARIN [Concomitant]
     Active Substance: ENOXAPARIN
     Indication: Portal vein thrombosis

REACTIONS (2)
  - Drug ineffective for unapproved indication [Fatal]
  - Off label use [Unknown]
